FAERS Safety Report 18997216 (Version 1)
Quarter: 2021Q1

REPORT INFORMATION
  Report Type: Spontaneous
  Country: US (occurrence: US)
  Receive Date: 20210311
  Receipt Date: 20210311
  Transmission Date: 20210420
  Serious: No
  Sender: FDA-Public Use
  Company Number: US-BAYER-2021-103179

PATIENT
  Age: 88 Year
  Sex: Female

DRUGS (1)
  1. MIRALAX [Suspect]
     Active Substance: POLYETHYLENE GLYCOL 3350
     Indication: URINE ABNORMALITY
     Dosage: HALF A DOSE DOSE
     Route: 048
     Dates: start: 202012

REACTIONS (2)
  - Product use in unapproved indication [Unknown]
  - Off label use [Unknown]
